FAERS Safety Report 8178663-7 (Version None)
Quarter: 2012Q1

REPORT INFORMATION
  Report Type: 
  Country: None (occurrence: None)
  Receive Date: 20120301
  Receipt Date: 20120221
  Transmission Date: 20120608
  Serious: Yes (Other)
  Sender: FDA-Public Use
  Company Number: US-ASTRAZENECA-2011SE78861

PATIENT
  Age: 90 Year
  Sex: Male

DRUGS (1)
  1. NEXIUM [Suspect]
     Dosage: TWO NEXIUM A DAY INSTEAD OF ONE
     Route: 048

REACTIONS (5)
  - BARRETT'S OESOPHAGUS [None]
  - OFF LABEL USE [None]
  - CEREBROVASCULAR ACCIDENT [None]
  - OESOPHAGEAL ULCER [None]
  - PARKINSON'S DISEASE [None]
